FAERS Safety Report 6508257-8 (Version None)
Quarter: 2009Q4

REPORT INFORMATION
  Report Type: 
  Country: None (occurrence: None)
  Receive Date: 20091221
  Receipt Date: 20091206
  Transmission Date: 20100525
  Serious: Yes (Congenital Anomaly)
  Sender: FDA-Public Use
  Company Number: AL-BAUSCH-2009BL006507

PATIENT
  Age: 22 Month
  Sex: Female

DRUGS (1)
  1. DICLOFENAC [Suspect]
     Indication: ABDOMINAL PAIN
     Route: 064

REACTIONS (2)
  - APLASIA CUTIS CONGENITA [None]
  - MATERNAL DRUGS AFFECTING FOETUS [None]
